FAERS Safety Report 26203376 (Version 1)
Quarter: 2025Q4

REPORT INFORMATION
  Report Type: Report from Study
  Country: CA (occurrence: CA)
  Receive Date: 20251226
  Receipt Date: 20251226
  Transmission Date: 20260117
  Serious: Yes (Hospitalization, Other)
  Sender: FERRING
  Company Number: CA-FERRINGPH-2025FE07627

PATIENT

DRUGS (1)
  1. DEGARELIX [Suspect]
     Active Substance: DEGARELIX
     Indication: Hormone-dependent prostate cancer
     Dosage: 80 MG, MONTHLY
     Route: 058
     Dates: start: 20240802

REACTIONS (3)
  - Pneumonia [Recovered/Resolved]
  - Influenza [Recovered/Resolved]
  - Hypotension [Recovered/Resolved]

NARRATIVE: CASE EVENT DATE: 20251214
